FAERS Safety Report 5956356-1 (Version None)
Quarter: 2008Q4

REPORT INFORMATION
  Report Type: 
  Country: None (occurrence: None)
  Receive Date: 20081118
  Receipt Date: 20081110
  Transmission Date: 20090506
  Serious: Yes (Hospitalization)
  Sender: FDA-Public Use
  Company Number: US-KINGPHARMUSA00001-K200801280

PATIENT
  Age: 77 Year
  Sex: Male

DRUGS (6)
  1. ALTACE [Suspect]
     Indication: HYPERTENSION
     Dosage: 10 MG, QD
     Route: 048
     Dates: start: 20050119, end: 20070501
  2. ZOPICLONE [Suspect]
     Dosage: UNK
     Route: 048
     Dates: end: 20070430
  3. ZYLORIC                            /00003301/ [Concomitant]
     Indication: HYPERURICAEMIA
     Dosage: 200 MG, QD
     Route: 048
     Dates: end: 20070430
  4. ISRADIPINE [Concomitant]
     Indication: HYPERTENSION
     Dosage: 5 MG, QD
     Route: 048
     Dates: end: 20070430
  5. GLUCOPHAGE [Concomitant]
     Indication: TYPE 2 DIABETES MELLITUS
     Dosage: 850 MG, QD
     Route: 048
     Dates: end: 20080430
  6. XYZAL [Concomitant]
     Indication: HYPERSENSITIVITY
     Dosage: 1 U, QD
     Route: 048
     Dates: end: 20080430

REACTIONS (4)
  - ANGIOEDEMA [None]
  - HEPATIC NEOPLASM MALIGNANT [None]
  - LABORATORY TEST ABNORMAL [None]
  - TRACHEAL OEDEMA [None]
